FAERS Safety Report 6217173-0 (Version None)
Quarter: 2009Q2

REPORT INFORMATION
  Report Type: 
  Country: None (occurrence: None)
  Receive Date: 20090608
  Receipt Date: 20080502
  Transmission Date: 20091009
  Serious: Yes (Other)
  Sender: FDA-Public Use
  Company Number: US-ASTRAZENECA-2008UW04315

PATIENT
  Age: 549 Month
  Sex: Female
  Weight: 93.4 kg

DRUGS (18)
  1. SEROQUEL [Suspect]
     Indication: ANXIETY
     Dosage: 25 MG TO 100 MG
     Route: 048
     Dates: start: 20000101, end: 20070901
  2. SEROQUEL [Suspect]
     Indication: BIPOLAR DISORDER
     Dosage: 25 MG TO 100 MG
     Route: 048
     Dates: start: 20000101, end: 20070901
  3. SEROQUEL [Suspect]
     Indication: DEPRESSION
     Dosage: 25 MG TO 100 MG
     Route: 048
     Dates: start: 20000101, end: 20070901
  4. SEROQUEL [Suspect]
     Dosage: 25 - 100 MG DAILY
     Route: 048
     Dates: start: 20060124
  5. SEROQUEL [Suspect]
     Dosage: 25 - 100 MG DAILY
     Route: 048
     Dates: start: 20060124
  6. SEROQUEL [Suspect]
     Dosage: 25 - 100 MG DAILY
     Route: 048
     Dates: start: 20060124
  7. HYDROCHLOROTHIAZIDE [Concomitant]
     Route: 048
     Dates: start: 20040922
  8. KLONOPIN [Concomitant]
     Dates: start: 20040922
  9. ZOCOR [Concomitant]
     Dates: start: 20040922
  10. LEXAPRO [Concomitant]
     Route: 048
     Dates: start: 20040922
  11. ASPIRIN [Concomitant]
     Route: 048
     Dates: start: 20040922
  12. SYNTHROID [Concomitant]
     Route: 048
     Dates: start: 20040922
  13. PROTONIX [Concomitant]
     Route: 048
     Dates: start: 20040922
  14. MONOPRIL [Concomitant]
     Route: 048
     Dates: start: 20040922
  15. ABILIFY [Concomitant]
     Route: 048
     Dates: start: 20040922
  16. KLOR-CON [Concomitant]
     Route: 048
     Dates: start: 20040922
  17. NORVASC [Concomitant]
     Dates: start: 20060124
  18. TRAZODONE HCL [Concomitant]
     Dosage: 50 - 150 MG DAILY
     Dates: start: 20060124

REACTIONS (4)
  - DIABETES MELLITUS INADEQUATE CONTROL [None]
  - DIABETIC GASTROPARESIS [None]
  - DIABETIC NEUROPATHY [None]
  - TYPE 2 DIABETES MELLITUS [None]
